FAERS Safety Report 5896422-2 (Version None)
Quarter: 2008Q3

REPORT INFORMATION
  Report Type: 
  Country: None (occurrence: None)
  Receive Date: 20080924
  Receipt Date: 20070808
  Transmission Date: 20090109
  Serious: Yes (Other)
  Sender: FDA-Public Use
  Company Number: US-BAYER-200711683BWH

PATIENT
  Age: 65 Year
  Sex: Male
  Weight: 104 kg

DRUGS (1)
  1. AVELOX [Suspect]
     Indication: SINUSITIS
     Route: 048

REACTIONS (6)
  - ANAPHYLACTIC REACTION [None]
  - BLOOD PRESSURE DECREASED [None]
  - DIZZINESS [None]
  - GENERALISED ERYTHEMA [None]
  - LETHARGY [None]
  - RASH [None]
